FAERS Safety Report 10674853 (Version 1)
Quarter: 2014Q4

REPORT INFORMATION
  Report Type: Spontaneous
  Country: US (occurrence: US)
  Receive Date: 20141224
  Receipt Date: 20141224
  Transmission Date: 20150529
  Serious: Yes (Other)
  Sender: FDA-Public Use
  Company Number: US-BRISTOL-MYERS SQUIBB COMPANY-BMS-2014-001420

PATIENT
  Sex: Male
  Weight: 89.62 kg

DRUGS (1)
  1. BARACLUDE [Suspect]
     Active Substance: ENTECAVIR
     Indication: PROPHYLAXIS
     Dosage: .5 MG, BID
     Route: 065
     Dates: start: 20140419

REACTIONS (1)
  - Hepatitis B antigen positive [Not Recovered/Not Resolved]
